FAERS Safety Report 10708282 (Version 1)
Quarter: 2015Q1

REPORT INFORMATION
  Report Type: Report from Study
  Country: BR (occurrence: BR)
  Receive Date: 20150113
  Receipt Date: 20150113
  Transmission Date: 20150721
  Serious: Yes (Other)
  Sender: FDA-Public Use
  Company Number: BR-GLAXOSMITHKLINE INC.-BR2015GSK002418

PATIENT
  Sex: Female
  Weight: 52 kg

DRUGS (4)
  1. CALCIUM [Concomitant]
     Active Substance: CALCIUM
     Indication: CALCIUM DEFICIENCY
     Dosage: 1 UNK, QD
     Route: 048
     Dates: start: 2011
  2. NOEX [Concomitant]
     Active Substance: BUDESONIDE
     Indication: NASAL POLYPS
     Dosage: 2 PUFF(S), BID
     Route: 055
     Dates: start: 2008
  3. SINGULAIR (MONTELUKAST SODIUM) [Concomitant]
     Indication: ASTHMA
     Dosage: 1 UNK, QD
     Route: 048
     Dates: start: 2008
  4. FLUTICASONE PROPIONATE+SALMETEROL XINAFOATE [Suspect]
     Active Substance: FLUTICASONE PROPIONATE\SALMETEROL XINAFOATE
     Indication: ASTHMA
     Dosage: 2 PUFF(S), BID
     Route: 048

REACTIONS (2)
  - Drug ineffective [Recovered/Resolved]
  - Asthmatic crisis [Recovered/Resolved]
